FAERS Safety Report 7206667-7 (Version None)
Quarter: 2011Q1

REPORT INFORMATION
  Report Type: 
  Country: None (occurrence: None)
  Receive Date: 20110103
  Receipt Date: 20101223
  Transmission Date: 20110831
  Serious: No
  Sender: FDA-Public Use
  Company Number: US-PFIZER INC-2010180118

PATIENT
  Age: 75 Year
  Sex: Female
  Weight: 68.038 kg

DRUGS (2)
  1. ADVIL [Suspect]
     Indication: RIB FRACTURE
     Dosage: 2-3 DF DAILY
     Route: 048
     Dates: start: 20101101, end: 20101101
  2. BENICAR [Concomitant]
     Indication: HYPERTENSION

REACTIONS (3)
  - URINARY TRACT DISORDER [None]
  - OEDEMA PERIPHERAL [None]
  - SWELLING FACE [None]
